FAERS Safety Report 26130369 (Version 2)
Quarter: 2025Q4

REPORT INFORMATION
  Report Type: Spontaneous
  Country: US (occurrence: US)
  Receive Date: 20251208
  Receipt Date: 20251229
  Transmission Date: 20260118
  Serious: Yes (Hospitalization)
  Sender: TEVA
  Company Number: US-TEVA-VS-3399532

PATIENT
  Age: 57 Year
  Sex: Female

DRUGS (4)
  1. NALOXONE [Suspect]
     Active Substance: NALOXONE
     Indication: Overdose
     Route: 065
  2. CYCLOBENZAPRINE [Suspect]
     Active Substance: CYCLOBENZAPRINE
     Indication: Product used for unknown indication
     Route: 048
  3. FENTANYL [Suspect]
     Active Substance: FENTANYL
     Indication: Product used for unknown indication
     Route: 065
  4. DEVICE [Suspect]
     Active Substance: DEVICE
     Route: 065

REACTIONS (9)
  - Serotonin syndrome [Recovered/Resolved]
  - Drug ineffective [Unknown]
  - Clonus [Recovered/Resolved]
  - Toxicity to various agents [Recovered/Resolved]
  - Urinary retention [Recovered/Resolved]
  - Agitation [Recovered/Resolved]
  - Overdose [Recovered/Resolved]
  - Hypertension [Recovered/Resolved]
  - Mydriasis [Recovered/Resolved]
